FAERS Safety Report 22230829 (Version 1)
Quarter: 2023Q2

REPORT INFORMATION
  Report Type: Other
  Country: JP (occurrence: JP)
  Receive Date: 20230420
  Receipt Date: 20230420
  Transmission Date: 20230722
  Serious: Yes (Hospitalization)
  Sender: FDA-Public Use
  Company Number: JP-ROCHE-3334058

PATIENT
  Age: 8 Year
  Sex: Male
  Weight: 65 kg

DRUGS (9)
  1. RITUXAN [Suspect]
     Active Substance: RITUXIMAB
     Indication: Nephrotic syndrome
     Dosage: 500MG,ONCE IN1DAY
     Route: 041
     Dates: start: 20200708, end: 20200708
  2. CELLCEPT [Suspect]
     Active Substance: MYCOPHENOLATE MOFETIL
     Indication: Nephrotic syndrome
     Dosage: ONCE IN12 HOUR
     Route: 048
     Dates: start: 201506
  3. SOLU-MEDROL [Concomitant]
     Active Substance: METHYLPREDNISOLONE SODIUM SUCCINATE
     Indication: Prophylaxis
     Dosage: 60MG,ONCE IN1DAY
     Route: 042
     Dates: start: 20200708, end: 20200708
  4. CALONAL [Concomitant]
     Active Substance: ACETAMINOPHEN
     Indication: Prophylaxis
     Dosage: 400MG,ONCE IN1DAY
     Route: 048
     Dates: start: 20200708, end: 20200708
  5. OLOPATADINE HYDROCHLORIDE [Concomitant]
     Active Substance: OLOPATADINE HYDROCHLORIDE
     Indication: Prophylaxis
     Dosage: 5MG,ONCE IN1DAY
     Route: 048
     Dates: start: 20200708, end: 20200708
  6. NEORAL [Concomitant]
     Active Substance: CYCLOSPORINE
     Indication: Nephrotic syndrome
     Dosage: 70MG,ONCE IN12HOUR
     Route: 048
     Dates: start: 200802
  7. PREDNISOLONE [Concomitant]
     Active Substance: PREDNISOLONE
     Indication: Nephrotic syndrome
     Dosage: 40MG,ONCE IN1DAY
     Route: 048
     Dates: start: 200801
  8. ALFACALCIDOL [Concomitant]
     Active Substance: ALFACALCIDOL
     Indication: Prophylaxis
     Dosage: ONCE IN1DAY
     Route: 048
     Dates: start: 201504
  9. BEPOTASTINE BESYLATE [Concomitant]
     Active Substance: BEPOTASTINE BESYLATE
     Indication: Urticaria
     Dosage: 10MG,ONCE IN12HOUR
     Route: 048

REACTIONS (2)
  - Serum sickness [Recovered/Resolved]
  - Off label use [Unknown]

NARRATIVE: CASE EVENT DATE: 20150601
